FAERS Safety Report 18512623 (Version 1)
Quarter: 2020Q4

REPORT INFORMATION
  Report Type: Spontaneous
  Country: DE (occurrence: DE)
  Receive Date: 20201117
  Receipt Date: 20201117
  Transmission Date: 20210114
  Serious: Yes (Life-Threatening, Hospitalization)
  Sender: FDA-Public Use
  Company Number: DE-MYLANLABS-2020M1094215

PATIENT
  Age: 80 Year
  Sex: Female

DRUGS (10)
  1. TORASEMIDE [Suspect]
     Active Substance: TORSEMIDE
     Indication: PRODUCT USED FOR UNKNOWN INDICATION
     Dosage: 10 MILLIGRAM, QD(10 MG, 0.5-0-0-0, TABLETTEN)
     Route: 048
  2. LERCANIDIPINE [Concomitant]
     Active Substance: LERCANIDIPINE
     Dosage: 25 MILLIGRAM, QD(20 MG, 0.5-0-0-1, TABLETTEN)
     Route: 048
  3. CALCIGEN D [Concomitant]
     Active Substance: CALCIUM CARBONATE\CHOLECALCIFEROL
     Dosage: 1 DOSAGE FORM, QD(1000|880 MG/IE, 1-0-0-0, TABLETTEN)
     Route: 048
  4. MOXONIDINE [Concomitant]
     Active Substance: MOXONIDINE
     Dosage: 0.6 MILLIGRAM, QD(0.2 MG, 1-0-2-0, TABLETTEN)
     Route: 048
  5. CANDESARTAN. [Concomitant]
     Active Substance: CANDESARTAN
     Dosage: 32 MG, 1-0-0-0, TABLETTEN
     Route: 048
  6. BISOPROLOL [Concomitant]
     Active Substance: BISOPROLOL
     Dosage: 5 MILLIGRAM, BID(5 MG, 1-0-0-1, TABLETTEN)
     Route: 048
  7. NATRIUMCHLORIDE [Concomitant]
     Active Substance: SODIUM CHLORIDE
     Dosage: NK MG, 2-1-1-0, TABLETTEN
     Route: 048
  8. SPIRONOLACTONE. [Suspect]
     Active Substance: SPIRONOLACTONE
     Indication: PRODUCT USED FOR UNKNOWN INDICATION
     Dosage: 25 MILLIGRAM, QD(50 MG, 0.5-0-0-0, TABLETTEN)
     Route: 048
  9. INDAPAMIDE. [Suspect]
     Active Substance: INDAPAMIDE
     Indication: PRODUCT USED FOR UNKNOWN INDICATION
     Dosage: 2.5 MILLIGRAM, QD(2.5 MG, 1-0-0-0, TABLETTEN)
     Route: 048
  10. NIFEDIPINE. [Concomitant]
     Active Substance: NIFEDIPINE
     Dosage: 10 MILLIGRAM, PRN(10 MG, BEI BEDARF, KAPSELN)
     Route: 048

REACTIONS (7)
  - Psychomotor retardation [Unknown]
  - Vertigo [Unknown]
  - General physical health deterioration [Unknown]
  - Therapeutic drug monitoring analysis not performed [Unknown]
  - Nausea [Unknown]
  - Electrolyte imbalance [Unknown]
  - Dizziness [Unknown]
